FAERS Safety Report 10299689 (Version 1)
Quarter: 2014Q3

REPORT INFORMATION
  Report Type: Spontaneous
  Country: JP (occurrence: JP)
  Receive Date: 20140711
  Receipt Date: 20140711
  Transmission Date: 20150326
  Serious: No
  Sender: FDA-Public Use
  Company Number: PHHY2012JP132106

PATIENT
  Age: 70 Year
  Sex: Male

DRUGS (2)
  1. DASATINIB [Concomitant]
     Active Substance: DASATINIB
  2. TASIGNA [Suspect]
     Active Substance: NILOTINIB
     Indication: CHRONIC MYELOID LEUKAEMIA
     Dosage: 400 MG, UNK
     Dates: start: 20120801

REACTIONS (1)
  - Blood bilirubin increased [Unknown]
